FAERS Safety Report 15523221 (Version 1)
Quarter: 2018Q4

REPORT INFORMATION
  Report Type: Spontaneous
  Country: US (occurrence: US)
  Receive Date: 20181018
  Receipt Date: 20181018
  Transmission Date: 20190205
  Serious: Yes (Other)
  Sender: FDA-Public Use
  Company Number: US-TEVA-2018-US-963410

PATIENT
  Sex: Female

DRUGS (1)
  1. CLONAZEPAM. [Suspect]
     Active Substance: CLONAZEPAM
     Indication: PANIC DISORDER
     Dosage: THREE TABLETS DAILY
     Route: 065
     Dates: start: 2013

REACTIONS (3)
  - Presyncope [Unknown]
  - Suicidal ideation [Unknown]
  - Malaise [Unknown]
